FAERS Safety Report 12794054 (Version 2)
Quarter: 2017Q2

REPORT INFORMATION
  Report Type: Spontaneous
  Country: US (occurrence: US)
  Receive Date: 20160929
  Receipt Date: 20170511
  Transmission Date: 20170830
  Serious: No
  Sender: FDA-Public Use
  Company Number: US-JNJFOC-20160814255

PATIENT
  Sex: Male

DRUGS (2)
  1. RISPERIDAL [Suspect]
     Active Substance: RISPERIDONE
     Indication: ABNORMAL BEHAVIOUR
     Route: 048
     Dates: end: 2014
  2. RISPERIDAL [Suspect]
     Active Substance: RISPERIDONE
     Indication: ABNORMAL BEHAVIOUR
     Dosage: VARYING DOSE OF 0.5 MG AND 1 MG
     Route: 048
     Dates: start: 201409, end: 201411

REACTIONS (3)
  - Abnormal weight gain [Unknown]
  - Cardiac murmur [Unknown]
  - Gynaecomastia [Unknown]

NARRATIVE: CASE EVENT DATE: 2014
